APPROVED DRUG PRODUCT: OXYCODONE AND ACETAMINOPHEN
Active Ingredient: ACETAMINOPHEN; OXYCODONE HYDROCHLORIDE
Strength: 500MG;5MG
Dosage Form/Route: CAPSULE;ORAL
Application: A040257 | Product #001
Applicant: MALLINCKRODT CHEMICAL INC
Approved: Aug 4, 1998 | RLD: No | RS: No | Type: DISCN